FAERS Safety Report 13817255 (Version 5)
Quarter: 2017Q3

REPORT INFORMATION
  Report Type: Spontaneous
  Country: US (occurrence: US)
  Receive Date: 20170731
  Receipt Date: 20170926
  Transmission Date: 20171127
  Serious: Yes (Other)
  Sender: FDA-Public Use
  Company Number: US-SA-2017SA137151

PATIENT
  Age: 67 Year
  Sex: Female
  Weight: 51.2 kg

DRUGS (4)
  1. TRESIBA [Concomitant]
     Active Substance: INSULIN DEGLUDEC
  2. LANTUS [Suspect]
     Active Substance: INSULIN GLARGINE
     Indication: TYPE 1 DIABETES MELLITUS
     Dosage: DOSE:10 UNIT(S)
     Route: 051
     Dates: start: 2001, end: 20170611
  3. HUMULIN NOS [Concomitant]
     Active Substance: INSULIN HUMAN
  4. NPH INSULIN [Concomitant]
     Active Substance: INSULIN BEEF
     Route: 065

REACTIONS (4)
  - Hypoglycaemia [Unknown]
  - Multiple fractures [Unknown]
  - Loss of consciousness [Unknown]
  - Glycosylated haemoglobin decreased [Unknown]
